FAERS Safety Report 18943644 (Version 4)
Quarter: 2021Q1

REPORT INFORMATION
  Report Type: Report from Study
  Country: US (occurrence: US)
  Receive Date: 20210226
  Receipt Date: 20210324
  Transmission Date: 20210420
  Serious: No
  Sender: FDA-Public Use
  Company Number: NVSC2021US043969

PATIENT
  Sex: Female

DRUGS (1)
  1. TASIGNA [Suspect]
     Active Substance: NILOTINIB
     Indication: PRODUCT USED FOR UNKNOWN INDICATION
     Dosage: UNK
     Route: 065

REACTIONS (8)
  - Bone pain [Unknown]
  - Osteoporosis [Unknown]
  - COVID-19 [Unknown]
  - Back pain [Unknown]
  - Myalgia [Unknown]
  - Hypertension [Unknown]
  - Spinal pain [Unknown]
  - Arthralgia [Unknown]
